FAERS Safety Report 9017201 (Version 1)
Quarter: 2013Q1

REPORT INFORMATION
  Report Type: Spontaneous
  Country: US (occurrence: US)
  Receive Date: 20130117
  Receipt Date: 20130117
  Transmission Date: 20140127
  Serious: Yes (Other)
  Sender: FDA-Public Use
  Company Number: US-MPIJNJ-2013-00208

PATIENT
  Sex: Male

DRUGS (5)
  1. VELCADE [Suspect]
     Indication: PLASMA CELL MYELOMA
     Dosage: UNK
     Route: 042
     Dates: start: 2012
  2. THALOMID [Suspect]
     Indication: PLASMA CELL MYELOMA
     Dosage: 50 MG, CYCLIC
     Route: 048
     Dates: start: 200903, end: 2012
  3. REVLIMID [Suspect]
     Indication: PRODUCT USED FOR UNKNOWN INDICATION
  4. COUMADIN                           /00014802/ [Concomitant]
     Indication: THROMBOSIS
     Dosage: UNK
     Route: 065
     Dates: end: 2012
  5. ASPIRIN [Concomitant]
     Indication: THROMBOSIS
     Dosage: UNK
     Route: 065
     Dates: start: 2012

REACTIONS (4)
  - Arthralgia [Unknown]
  - Drug ineffective [Unknown]
  - Fatigue [Unknown]
  - Neuropathy peripheral [Unknown]
